FAERS Safety Report 16918949 (Version 2)
Quarter: 2020Q2

REPORT INFORMATION
  Report Type: Spontaneous
  Country: US (occurrence: US)
  Receive Date: 20191015
  Receipt Date: 20200402
  Transmission Date: 20200713
  Serious: No
  Sender: FDA-Public Use
  Company Number: US-PFIZER INC-2019064045

PATIENT
  Age: 76 Year
  Sex: Female

DRUGS (1)
  1. XELJANZ XR [Suspect]
     Active Substance: TOFACITINIB CITRATE
     Indication: BLOOD PRESSURE ABNORMAL
     Dosage: 11 MG, UNK

REACTIONS (3)
  - Product use in unapproved indication [Unknown]
  - Dysphonia [Unknown]
  - Off label use [Unknown]
